FAERS Safety Report 4393246-2 (Version None)
Quarter: 2004Q3

REPORT INFORMATION
  Report Type: 
  Country: None (occurrence: None)
  Receive Date: 20040702
  Receipt Date: 20040621
  Transmission Date: 20050211
  Serious: Yes (Other)
  Sender: FDA-Public Use
  Company Number: ZA-JNJFOC-20040605714

PATIENT
  Age: 31 Year
  Sex: Female

DRUGS (6)
  1. REMICADE [Suspect]
     Indication: SPONDYLOARTHROPATHY
     Dosage: 200 MG 1 IN 1 DAY INTRAVENOUS
     Route: 042
     Dates: start: 20040601, end: 20040601
  2. MELOXICAM (MELOXICAM) TABLETS [Suspect]
     Indication: SPONDYLOARTHROPATHY
     Dosage: 7.5 MG ORAL
     Route: 048
     Dates: start: 20040108, end: 20040615
  3. METHOTREXATE [Concomitant]
  4. FOLIC ACID [Concomitant]
  5. LOXIFLAM (ALL OTHER THERAPEUTICS PRODUCTS) [Concomitant]
  6. ZOPIMED (ALL OTHER THERAPEUTIC PRODUCTS) [Concomitant]

REACTIONS (7)
  - DIARRHOEA [None]
  - FLUSHING [None]
  - HEADACHE [None]
  - MALAISE [None]
  - PYREXIA [None]
  - RASH [None]
  - VASCULITIS [None]
